FAERS Safety Report 19938873 (Version 2)
Quarter: 2022Q3

REPORT INFORMATION
  Report Type: Spontaneous
  Country: GR (occurrence: GR)
  Receive Date: 20211011
  Receipt Date: 20220713
  Transmission Date: 20221027
  Serious: Yes (Other)
  Sender: FDA-Public Use
  Company Number: GR-GSKCCFEMEA-CASE-01320333_AE-50156

PATIENT

DRUGS (1)
  1. BLENREP [Suspect]
     Active Substance: BELANTAMAB MAFODOTIN-BLMF
     Indication: Product used for unknown indication
     Dosage: 2.5 MG/KG

REACTIONS (3)
  - Blindness [Unknown]
  - Corneal disorder [Unknown]
  - Condition aggravated [Unknown]
